FAERS Safety Report 19976802 (Version 13)
Quarter: 2023Q1

REPORT INFORMATION
  Report Type: Report from Study
  Country: RU (occurrence: RU)
  Receive Date: 20211021
  Receipt Date: 20230224
  Transmission Date: 20230418
  Serious: Yes (Life-Threatening, Hospitalization)
  Sender: FDA-Public Use
  Company Number: RU-AMGEN-RUSCT2021162228

PATIENT
  Age: 7 Year
  Sex: Male

DRUGS (16)
  1. CARFILZOMIB [Suspect]
     Active Substance: CARFILZOMIB
     Indication: Acute lymphocytic leukaemia
     Dosage: 44 MILLIGRAM,PER CHEMO REGIM
     Route: 042
     Dates: start: 20210929
  2. CARFILZOMIB [Suspect]
     Active Substance: CARFILZOMIB
     Dosage: UNK UNK, PER CHEMO REGIM
     Route: 042
     Dates: start: 20211020
  3. CYTARABINE [Suspect]
     Active Substance: CYTARABINE
     Indication: Acute lymphocytic leukaemia
     Dosage: 24 MILLIGRAM
     Route: 037
     Dates: start: 20211006
  4. METHOTREXATE [Suspect]
     Active Substance: METHOTREXATE
     Indication: Acute lymphocytic leukaemia
     Dosage: 12 MILLIGRAM
     Route: 037
     Dates: start: 20211006, end: 20211013
  5. VINCRISTINE [Concomitant]
     Active Substance: VINCRISTINE
     Dosage: 1.2 MILLIGRAM
     Route: 065
     Dates: start: 20210929, end: 20211006
  6. PEG/L-ASPARAGINASE [Concomitant]
     Active Substance: PEGASPARGASE
     Dosage: 2000 UNK
     Dates: start: 20211002, end: 20211016
  7. CYTOFLAVIN [Concomitant]
     Dosage: 10 MILLILITER
     Route: 042
     Dates: start: 20211007, end: 20211011
  8. CEREBROLYSIN [Concomitant]
     Active Substance: CEREBROLYSIN
     Dosage: 2 MILLILITER
     Route: 042
     Dates: start: 20210914, end: 20211022
  9. DAUNORUBICIN [Concomitant]
     Active Substance: DAUNORUBICIN
     Dosage: 20 MILLIGRAM
     Dates: start: 20210929
  10. DEXAMETHASONE [Concomitant]
     Active Substance: DEXAMETHASONE
     Dosage: 2.4 MILLIGRAM
     Dates: start: 20210929, end: 20211020
  11. SODIUM CHLORIDE [Concomitant]
     Active Substance: SODIUM CHLORIDE
     Dosage: 100 MILLILITER
     Route: 042
     Dates: start: 20210929, end: 20211020
  12. .ALPHA.-LIPOIC ACID [Concomitant]
     Active Substance: .ALPHA.-LIPOIC ACID
     Dosage: 300 MILLIGRAM
     Route: 042
     Dates: start: 20211012, end: 20211012
  13. ACYCLOVIR [Concomitant]
     Active Substance: ACYCLOVIR
     Dosage: 150 MILLIGRAM
     Dates: start: 20210929, end: 20211026
  14. VORICONAZOLE [Concomitant]
     Active Substance: VORICONAZOLE
     Dosage: 100 MILLIGRAM
     Route: 048
     Dates: start: 20210929, end: 20211026
  15. SULFAMETHOXAZOLE\TRIMETHOPRIM [Concomitant]
     Active Substance: SULFAMETHOXAZOLE\TRIMETHOPRIM
     Dosage: 480 MILLIGRAM
     Route: 048
     Dates: start: 20210929, end: 20211026
  16. POTASSIUM [Concomitant]
     Active Substance: POTASSIUM

REACTIONS (1)
  - Hypokalaemia [Recovered/Resolved]

NARRATIVE: CASE EVENT DATE: 20211013
